FAERS Safety Report 14753616 (Version 2)
Quarter: 2018Q2

REPORT INFORMATION
  Report Type: Report from Study
  Country: US (occurrence: US)
  Receive Date: 20180412
  Receipt Date: 20180424
  Transmission Date: 20180711
  Serious: Yes (Death, Other)
  Sender: FDA-Public Use
  Company Number: US-TEVA-2018-US-879664

PATIENT
  Age: 42 Year
  Sex: Male

DRUGS (2)
  1. METOPROLOL. [Suspect]
     Active Substance: METOPROLOL
     Route: 065
  2. METHAMPHETAMINE [Suspect]
     Active Substance: METHAMPHETAMINE
     Route: 065

REACTIONS (8)
  - Depressed level of consciousness [Unknown]
  - Hypotension [Unknown]
  - Acute lung injury [Unknown]
  - Acute respiratory distress syndrome [Unknown]
  - Coma [Unknown]
  - Hepatotoxicity [Unknown]
  - Toxicity to various agents [Fatal]
  - Metabolic acidosis [Unknown]
